FAERS Safety Report 10248906 (Version 1)
Quarter: 2014Q2

REPORT INFORMATION
  Report Type: Report from Study
  Country: FR (occurrence: FR)
  Receive Date: 20140620
  Receipt Date: 20140620
  Transmission Date: 20141212
  Serious: Yes (Hospitalization, Other)
  Sender: FDA-Public Use
  Company Number: FR-TAKEDA-2014JNJ003997

PATIENT
  Sex: 0

DRUGS (8)
  1. VELCADE [Suspect]
     Indication: PLASMA CELL MYELOMA
     Dosage: 1.3 MG, UNK
     Route: 065
     Dates: start: 20120817, end: 20130329
  2. REVLIMID [Suspect]
     Indication: PLASMA CELL MYELOMA
     Dosage: 25 MG, UNK
     Route: 065
     Dates: start: 20120817, end: 20130718
  3. DEXAMETHASONE [Suspect]
     Indication: PLASMA CELL MYELOMA
     Dosage: 10 MG, UNK
     Route: 065
     Dates: start: 20120817, end: 20130329
  4. KARDEGIC [Concomitant]
     Indication: MITRAL VALVE DISEASE
     Dosage: 300 UNK, UNK
  5. FLECAINE [Concomitant]
     Indication: MITRAL VALVE DISEASE
     Dosage: UNK
  6. INEXIUM                            /01479302/ [Concomitant]
     Indication: GASTRITIS PROPHYLAXIS
     Dosage: UNK
     Dates: start: 20120719
  7. ZOLPIDEM [Concomitant]
     Indication: INSOMNIA
     Dosage: UNK
     Dates: start: 20121027
  8. CARDENSIEL [Concomitant]
     Indication: MITRAL VALVE DISEASE
     Dosage: UNK

REACTIONS (1)
  - Investigation [Not Recovered/Not Resolved]
